FAERS Safety Report 14369694 (Version 6)
Quarter: 2018Q2

REPORT INFORMATION
  Report Type: Spontaneous
  Country: US (occurrence: US)
  Receive Date: 20180110
  Receipt Date: 20180410
  Transmission Date: 20180711
  Serious: Yes (Other)
  Sender: FDA-Public Use
  Company Number: US-AMGEN-USASP2018002426

PATIENT
  Age: 30 Year
  Sex: Male

DRUGS (6)
  1. METHOTREXATE. [Suspect]
     Active Substance: METHOTREXATE
     Dosage: 0.9 UNK(INJECTION), QWK
     Route: 058
     Dates: start: 2017, end: 201708
  2. ENBREL [Suspect]
     Active Substance: ETANERCEPT
     Indication: PSORIATIC ARTHROPATHY
     Dosage: UNK
     Route: 065
     Dates: start: 201708, end: 201710
  3. XELJANZ XR [Suspect]
     Active Substance: TOFACITINIB CITRATE
     Indication: PRODUCT USED FOR UNKNOWN INDICATION
     Dosage: 11 MG, UNK
     Route: 065
  4. OTEZLA [Concomitant]
     Active Substance: APREMILAST
     Dosage: UNK
  5. STELARA [Concomitant]
     Active Substance: USTEKINUMAB
     Dosage: UNK
  6. METHOTREXATE. [Suspect]
     Active Substance: METHOTREXATE
     Indication: PSORIATIC ARTHROPATHY
     Dosage: UNK (TABLET)
     Route: 065
     Dates: start: 201703, end: 2017

REACTIONS (16)
  - Treatment failure [Unknown]
  - Nausea [Unknown]
  - Feeling abnormal [Unknown]
  - Rash papular [Unknown]
  - Gastric disorder [Recovering/Resolving]
  - Arthralgia [Unknown]
  - Drug intolerance [Unknown]
  - Blood urine present [Unknown]
  - Dermal cyst [Unknown]
  - Mental impairment [Unknown]
  - Diarrhoea [Unknown]
  - Tremor [Unknown]
  - Pyrexia [Unknown]
  - Feeling cold [Unknown]
  - Folliculitis [Unknown]
  - Skin infection [Unknown]

NARRATIVE: CASE EVENT DATE: 2017
